FAERS Safety Report 7890191-2 (Version None)
Quarter: 2011Q4

REPORT INFORMATION
  Report Type: 
  Country: None (occurrence: None)
  Receive Date: 20111103
  Receipt Date: 20110722
  Transmission Date: 20120403
  Serious: Yes (Hospitalization, Other)
  Sender: FDA-Public Use
  Company Number: US-AMGEN-USASP2011028728

PATIENT
  Age: 35 Year
  Sex: Male

DRUGS (2)
  1. ENBREL [Suspect]
     Indication: PSORIASIS
     Dosage: 50 MG, QWK
     Dates: start: 20100701
  2. EFFEXOR XR [Concomitant]
     Dosage: UNK

REACTIONS (2)
  - HEPATIC ENZYME INCREASED [None]
  - PNEUMONIA [None]
